FAERS Safety Report 12978155 (Version 1)
Quarter: 2016Q4

REPORT INFORMATION
  Report Type: Spontaneous
  Country: US (occurrence: US)
  Receive Date: 20161126
  Receipt Date: 20161126
  Transmission Date: 20170207
  Serious: Yes (Life-Threatening, Hospitalization, Disabling, Other)
  Sender: FDA-Public Use
  Company Number: None

PATIENT
  Age: 57 Year
  Sex: Male
  Weight: 126 kg

DRUGS (1)
  1. BYETTA [Suspect]
     Active Substance: EXENATIDE
     Indication: DIABETES MELLITUS
     Dates: start: 20071001, end: 20081101

REACTIONS (2)
  - Systemic scleroderma [None]
  - Scleroderma [None]

NARRATIVE: CASE EVENT DATE: 20081101
